FAERS Safety Report 16957785 (Version 3)
Quarter: 2020Q3

REPORT INFORMATION
  Report Type: Spontaneous
  Country: US (occurrence: US)
  Receive Date: 20191024
  Receipt Date: 20200909
  Transmission Date: 20201102
  Serious: Yes (Hospitalization)
  Sender: FDA-Public Use
  Company Number: US-SA-2019SA286668

PATIENT

DRUGS (2)
  1. HUMIRA [Concomitant]
     Active Substance: ADALIMUMAB
  2. KEVZARA [Suspect]
     Active Substance: SARILUMAB
     Indication: RHEUMATOID ARTHRITIS
     Dosage: 200 MG, QOW
     Route: 058
     Dates: start: 20190927, end: 2019

REACTIONS (16)
  - Head discomfort [Recovered/Resolved]
  - Influenza [Recovered/Resolved]
  - Fall [Unknown]
  - Hypersomnia [Unknown]
  - Neck pain [Recovered/Resolved]
  - Dyspnoea [Recovered/Resolved]
  - Fatigue [Recovered/Resolved]
  - Nasal congestion [Recovered/Resolved]
  - Arthritis [Unknown]
  - Dizziness [Recovered/Resolved]
  - Contusion [Unknown]
  - Illness [Unknown]
  - Herpes zoster [Unknown]
  - Oropharyngeal pain [Recovered/Resolved]
  - Illness [Recovered/Resolved]
  - Pruritus [Unknown]

NARRATIVE: CASE EVENT DATE: 20190927
